FAERS Safety Report 14971646 (Version 3)
Quarter: 2018Q3

REPORT INFORMATION
  Report Type: Report from Study
  Country: None (occurrence: DE)
  Receive Date: 20180604
  Receipt Date: 20180712
  Transmission Date: 20181010
  Serious: Yes (Other)
  Sender: FDA-Public Use
  Company Number: DE-ABBVIE-17K-062-1867843-00

PATIENT
  Age: 42 Year
  Sex: Female

DRUGS (3)
  1. HUMIRA [Suspect]
     Active Substance: ADALIMUMAB
     Indication: HIDRADENITIS
     Route: 058
     Dates: start: 20161001, end: 201610
  2. HUMIRA [Suspect]
     Active Substance: ADALIMUMAB
     Route: 058
     Dates: start: 2018, end: 201806
  3. HUMIRA [Suspect]
     Active Substance: ADALIMUMAB
     Indication: PSORIASIS
     Route: 058
     Dates: start: 20170202

REACTIONS (21)
  - Skin disorder [Unknown]
  - Post procedural complication [Unknown]
  - Post procedural complication [Not Recovered/Not Resolved]
  - Rash pruritic [Not Recovered/Not Resolved]
  - Abscess [Recovered/Resolved]
  - Subcutaneous abscess [Recovered/Resolved]
  - Incorrect dose administered [Unknown]
  - Dysphonia [Not Recovered/Not Resolved]
  - Groin abscess [Recovered/Resolved]
  - Aphonia [Recovered/Resolved]
  - Mouth swelling [Recovered/Resolved]
  - Condition aggravated [Recovering/Resolving]
  - Diarrhoea [Recovered/Resolved]
  - Drug ineffective [Not Recovered/Not Resolved]
  - Stress [Unknown]
  - Breast abscess [Recovered/Resolved]
  - Rash pustular [Not Recovered/Not Resolved]
  - Mouth swelling [Not Recovered/Not Resolved]
  - Paradoxical drug reaction [Recovering/Resolving]
  - Laryngitis [Recovered/Resolved]
  - Aphonia [Not Recovered/Not Resolved]

NARRATIVE: CASE EVENT DATE: 20170111
